FAERS Safety Report 4920407-3 (Version None)
Quarter: 2006Q1

REPORT INFORMATION
  Report Type: 
  Country: None (occurrence: None)
  Receive Date: 20060223
  Receipt Date: 20041028
  Transmission Date: 20060701
  Serious: Yes (Hospitalization, Disabling, Other)
  Sender: FDA-Public Use
  Company Number: US-MERCK-0410USA04438

PATIENT
  Age: 53 Year
  Sex: Female
  Weight: 105 kg

DRUGS (4)
  1. VIOXX [Suspect]
     Indication: ARTHRITIS
     Route: 048
     Dates: start: 20020601, end: 20040901
  2. VIOXX [Suspect]
     Indication: BACK PAIN
     Route: 048
     Dates: start: 20020601, end: 20040901
  3. HYZAAR [Concomitant]
     Indication: HYPERTENSION
     Route: 048
  4. VALTREX [Concomitant]
     Route: 065

REACTIONS (3)
  - BREAST CANCER [None]
  - CHEST PAIN [None]
  - MYOCARDIAL INFARCTION [None]
